FAERS Safety Report 5563980-7 (Version None)
Quarter: 2007Q4

REPORT INFORMATION
  Report Type: 
  Country: None (occurrence: None)
  Receive Date: 20071217
  Receipt Date: 20071207
  Transmission Date: 20080405
  Serious: Yes (Hospitalization, Other)
  Sender: FDA-Public Use
  Company Number: TR-ELI_LILLY_AND_COMPANY-TR200712001719

PATIENT
  Age: 44 Year
  Sex: Female
  Weight: 80 kg

DRUGS (4)
  1. HUMALOG MIX 75/25 [Suspect]
     Indication: TYPE 2 DIABETES MELLITUS
     Dosage: 38 U, EACH MORNING
     Route: 058
     Dates: start: 20020101
  2. HUMALOG MIX 75/25 [Suspect]
     Dosage: 28 U, EACH EVENING
     Route: 058
     Dates: start: 20020101
  3. MONOPRIL [Concomitant]
     Indication: HYPERTENSION
     Dosage: 20 MG, EACH MORNING
     Route: 048
     Dates: start: 20030101
  4. MONOPRIL [Concomitant]
     Dosage: 20 MG, AT NOON
     Route: 048
     Dates: start: 20030101

REACTIONS (5)
  - BLOOD GLUCOSE INCREASED [None]
  - HEPATIC STEATOSIS [None]
  - HOT FLUSH [None]
  - HYPERHIDROSIS [None]
  - UTERINE LEIOMYOMA [None]
